FAERS Safety Report 4297189-4 (Version None)
Quarter: 2004Q1

REPORT INFORMATION
  Report Type: 
  Country: None (occurrence: None)
  Receive Date: 20040218
  Receipt Date: 20040209
  Transmission Date: 20041129
  Serious: Yes (Other)
  Sender: FDA-Public Use
  Company Number: FR-BRISTOL-MYERS SQUIBB COMPANY-12500617

PATIENT
  Age: 15 Year
  Sex: Male

DRUGS (2)
  1. CAPTOPRIL [Suspect]
     Indication: AORTIC VALVE INCOMPETENCE
  2. FENTANYL CITRATE [Suspect]
     Indication: ANAESTHESIA

REACTIONS (2)
  - CHOREA [None]
  - PERICARDIAL EFFUSION [None]
